FAERS Safety Report 4641556-3 (Version None)
Quarter: 2005Q2

REPORT INFORMATION
  Report Type: 
  Country: None (occurrence: None)
  Receive Date: 20050420
  Receipt Date: 20050404
  Transmission Date: 20051028
  Serious: Yes (Hospitalization)
  Sender: FDA-Public Use
  Company Number: USA050394161

PATIENT
  Age: 78 Year
  Sex: Female

DRUGS (3)
  1. FORTEO [Suspect]
     Indication: BONE DENSITY DECREASED
     Dates: start: 20050101
  2. EFFEXOR [Concomitant]
  3. LIPITOR [Concomitant]

REACTIONS (9)
  - ARTHRITIS [None]
  - BACK PAIN [None]
  - FALL [None]
  - HAEMATOMA [None]
  - INTERVERTEBRAL DISC COMPRESSION [None]
  - MALAISE [None]
  - PHARMACEUTICAL PRODUCT COMPLAINT [None]
  - SACRAL PAIN [None]
  - SOFT TISSUE DISORDER [None]
